FAERS Safety Report 13518592 (Version 1)
Quarter: 2017Q2

REPORT INFORMATION
  Report Type: Spontaneous
  Country: RU (occurrence: RU)
  Receive Date: 20170505
  Receipt Date: 20170505
  Transmission Date: 20170830
  Serious: Yes (Other)
  Sender: FDA-Public Use
  Company Number: RU-BAYER-2017-082867

PATIENT
  Age: 44 Year
  Sex: Female

DRUGS (1)
  1. ETHINYLESTRADIOL + LEVONORGESTREL [Suspect]
     Active Substance: ETHINYL ESTRADIOL\LEVONORGESTREL
     Dosage: UNK UNK, CONT
     Route: 048

REACTIONS (2)
  - Abnormal withdrawal bleeding [None]
  - Osteochondrosis [None]
